FAERS Safety Report 25356994 (Version 1)
Quarter: 2025Q2

REPORT INFORMATION
  Report Type: Spontaneous
  Country: US (occurrence: US)
  Receive Date: 20250526
  Receipt Date: 20250526
  Transmission Date: 20250717
  Serious: No
  Sender: VANDA PHARMACEUTICALS
  Company Number: US-VANDA PHARMACEUTICALS, INC-2024ILOUS001977

PATIENT
  Sex: Female

DRUGS (1)
  1. FANAPT [Suspect]
     Active Substance: ILOPERIDONE
     Indication: Bipolar I disorder
     Dosage: 1 MILLIGRAM, QD
     Route: 048

REACTIONS (3)
  - Chest discomfort [Unknown]
  - Movement disorder [Unknown]
  - Dizziness [Unknown]
